FAERS Safety Report 5647119-5 (Version None)
Quarter: 2008Q1

REPORT INFORMATION
  Report Type: 
  Country: None (occurrence: None)
  Receive Date: 20080228
  Receipt Date: 20080219
  Transmission Date: 20080703
  Serious: Yes (Hospitalization, Other)
  Sender: FDA-Public Use
  Company Number: UKP07000208

PATIENT
  Age: 62 Year
  Sex: Female
  Weight: 83 kg

DRUGS (2)
  1. DIDRONEL [Suspect]
     Indication: OSTEOPENIA
     Dosage: 400 MG, CYCLIC 1/D, ORAL
     Route: 048
     Dates: start: 20070101, end: 20070501
  2. LEVOTHYROXINE SODIUM [Concomitant]

REACTIONS (1)
  - CHOLELITHIASIS [None]
